FAERS Safety Report 11552672 (Version 2)
Quarter: 2015Q3

REPORT INFORMATION
  Report Type: Spontaneous
  Country: BR (occurrence: BR)
  Receive Date: 20150925
  Receipt Date: 20150929
  Transmission Date: 20151125
  Serious: Yes (Other)
  Sender: FDA-Public Use
  Company Number: BR-ROCHE-1637361

PATIENT
  Sex: Male

DRUGS (4)
  1. GAZYVA [Suspect]
     Active Substance: OBINUTUZUMAB
     Indication: PRODUCT USED FOR UNKNOWN INDICATION
     Dosage: FLOW RATE: 25 ML/H
     Route: 042
  2. GAZYVA [Suspect]
     Active Substance: OBINUTUZUMAB
     Dosage: FLOW RATE: 10 ML/H
     Route: 042
  3. PURINETHOL [Concomitant]
     Active Substance: MERCAPTOPURINE
     Route: 065
     Dates: start: 200909
  4. GAZYVA [Suspect]
     Active Substance: OBINUTUZUMAB
     Dosage: FLOW RATE: 25 ML/H
     Route: 042

REACTIONS (5)
  - Hyperhidrosis [Recovered/Resolved]
  - Hypotension [Recovered/Resolved]
  - Nausea [Recovered/Resolved]
  - Flushing [Recovered/Resolved]
  - Chills [Recovered/Resolved]
